FAERS Safety Report 4551934-9 (Version None)
Quarter: 2005Q1

REPORT INFORMATION
  Report Type: 
  Country: None (occurrence: None)
  Receive Date: 20041217
  Receipt Date: 20040824
  Transmission Date: 20050727
  Serious: No
  Sender: FDA-Public Use
  Company Number: 2004-BP-07192BP

PATIENT
  Age: 69 Year
  Sex: Male

DRUGS (3)
  1. SPIRIVA [Suspect]
     Indication: CHRONIC OBSTRUCTIVE PULMONARY DISEASE
     Dosage: (18 MCG), IH
     Route: 055
  2. COMBIVENT [Suspect]
     Indication: CHRONIC OBSTRUCTIVE PULMONARY DISEASE
     Dosage: IH
     Route: 055
  3. SERETIDE (SALMETEROL XINAFOATE/FLUTICASONE PRIOPIONATE) [Suspect]
     Indication: CHRONIC OBSTRUCTIVE PULMONARY DISEASE
     Dosage: IH
     Route: 055

REACTIONS (1)
  - DYSPHONIA [None]
